FAERS Safety Report 10270338 (Version 2)
Quarter: 2014Q3

REPORT INFORMATION
  Report Type: Spontaneous
  Country: US (occurrence: US)
  Receive Date: 20140701
  Receipt Date: 20140811
  Transmission Date: 20150326
  Serious: Yes (Other)
  Sender: FDA-Public Use
  Company Number: US-PFIZER INC-2014177614

PATIENT
  Age: 65 Year
  Sex: Female
  Weight: 72.56 kg

DRUGS (2)
  1. LIPITOR [Suspect]
     Active Substance: ATORVASTATIN CALCIUM
     Indication: BLOOD CHOLESTEROL INCREASED
     Dosage: 10 MG, 1X/DAY
     Route: 048
     Dates: end: 2006
  2. NORVASC [Concomitant]
     Active Substance: AMLODIPINE BESYLATE
     Dosage: 5 MG, UNK

REACTIONS (9)
  - Pancreatitis [Unknown]
  - Drug intolerance [Unknown]
  - Toxicity to various agents [Unknown]
  - Hepatic enzyme increased [Unknown]
  - Hepatitis [Unknown]
  - Jaundice [Unknown]
  - Diabetes mellitus [Unknown]
  - Hair disorder [Unknown]
  - Malaise [Unknown]

NARRATIVE: CASE EVENT DATE: 2005
